FAERS Safety Report 8957068 (Version 1)
Quarter: 2012Q4

REPORT INFORMATION
  Report Type: 
  Country: CA (occurrence: CA)
  Receive Date: 20121211
  Receipt Date: 20121211
  Transmission Date: 20130627
  Serious: Yes (Hospitalization)
  Sender: FDA-Public Use
  Company Number: CA-ROCHE-1165714

PATIENT
  Age: 20 Year
  Sex: Male
  Weight: 76 kg

DRUGS (3)
  1. XOLAIR [Suspect]
     Indication: WHEEZING
     Route: 058
     Dates: start: 20051013
  2. XOLAIR [Suspect]
     Indication: CHEST DISCOMFORT
  3. XOLAIR [Suspect]
     Indication: DYSPNOEA EXERTIONAL

REACTIONS (5)
  - Chest pain [Unknown]
  - Dyspnoea [Unknown]
  - Injection site bruising [Unknown]
  - Injection site swelling [Unknown]
  - Dizziness [Recovered/Resolved]
